FAERS Safety Report 18900006 (Version 1)
Quarter: 2021Q1

REPORT INFORMATION
  Report Type: Spontaneous
  Country: JP (occurrence: JP)
  Receive Date: 20210216
  Receipt Date: 20210216
  Transmission Date: 20210420
  Serious: Yes (Other)
  Sender: FDA-Public Use
  Company Number: JP-SPECGX-T202100241

PATIENT
  Age: 5 Decade
  Sex: Male

DRUGS (9)
  1. METHADONE [Suspect]
     Active Substance: METHADONE HYDROCHLORIDE
     Dosage: UNK (60 MG IN 3 DIVIDED DOSES)
     Route: 065
  2. OXYCODONE HYDROCHLORIDE TRIHYDRATE. [Suspect]
     Active Substance: OXYCODONE HYDROCHLORIDE TRIHYDRATE
     Indication: PRODUCT USED FOR UNKNOWN INDICATION
     Dosage: 150 MILLIGRAM
     Route: 058
  3. CAFFEINE AND SODIUM BENZOATE [Concomitant]
     Active Substance: CAFFEINE\SODIUM BENZOATE
     Indication: PRODUCT USED FOR UNKNOWN INDICATION
     Dosage: 0.8 GRAM
     Route: 065
  4. OXYCODONE HYDROCHLORIDE TRIHYDRATE. [Suspect]
     Active Substance: OXYCODONE HYDROCHLORIDE TRIHYDRATE
     Dosage: 200 MILLIGRAM
     Route: 058
  5. METHADONE [Suspect]
     Active Substance: METHADONE HYDROCHLORIDE
     Indication: PAIN IN EXTREMITY
     Dosage: UNK (45 MG IN 3 DIVIDED DOSES)
     Route: 065
  6. PROCHLORPERAZINE MALEATE. [Concomitant]
     Active Substance: PROCHLORPERAZINE MALEATE
     Indication: PRODUCT USED FOR UNKNOWN INDICATION
     Dosage: 15 MILLIGRAM
  7. OXYCODONE [Suspect]
     Active Substance: OXYCODONE
     Indication: PAIN IN EXTREMITY
     Dosage: UNK (60 MG IN 2 DIVIDED DOSES)
     Route: 065
  8. PREGABALIN. [Concomitant]
     Active Substance: PREGABALIN
     Indication: PRODUCT USED FOR UNKNOWN INDICATION
     Dosage: 75 MILLIGRAM
     Route: 065
  9. METOCLOPRAMIDE. [Suspect]
     Active Substance: METOCLOPRAMIDE
     Indication: PAIN IN EXTREMITY
     Dosage: UNK (15 MG IN 3 DIVIDED DOSES)
     Route: 065

REACTIONS (5)
  - Ileus [Unknown]
  - Nausea [Unknown]
  - Malaise [Recovering/Resolving]
  - Delirium [Unknown]
  - Somnolence [Recovering/Resolving]
